FAERS Safety Report 9057208 (Version 1)
Quarter: 2013Q1

REPORT INFORMATION
  Report Type: Spontaneous
  Country: BR (occurrence: BR)
  Receive Date: 20130131
  Receipt Date: 20130131
  Transmission Date: 20140127
  Serious: Yes (Hospitalization)
  Sender: FDA-Public Use
  Company Number: BR-MERCK-1301BRA013863

PATIENT
  Age: 34 None
  Sex: Female
  Weight: 88 kg

DRUGS (5)
  1. JANUMET [Suspect]
     Indication: TYPE 2 DIABETES MELLITUS
     Dosage: UNK, BID
     Route: 048
     Dates: start: 2010
  2. DAONIL [Concomitant]
     Indication: TYPE 2 DIABETES MELLITUS
     Dosage: 5 MG, BID
  3. LOTAR [Concomitant]
     Indication: HYPERTENSION
     Dosage: UNK
  4. XENICAL [Concomitant]
     Indication: BLOOD CHOLESTEROL
     Dosage: 120 MG, BID
  5. XENICAL [Concomitant]
     Indication: BLOOD TRIGLYCERIDES

REACTIONS (9)
  - Hysterectomy [Recovered/Resolved]
  - Oophorectomy [Recovered/Resolved]
  - Abdominal hernia [Not Recovered/Not Resolved]
  - Amenorrhoea [Unknown]
  - Cyst [Unknown]
  - Depression [Recovering/Resolving]
  - Insomnia [Recovering/Resolving]
  - Blood glucose increased [Not Recovered/Not Resolved]
  - Blood pressure increased [Unknown]
